FAERS Safety Report 8999801 (Version 3)
Quarter: 2013Q1

REPORT INFORMATION
  Report Type: Spontaneous
  Country: US (occurrence: US)
  Receive Date: 20130102
  Receipt Date: 20130201
  Transmission Date: 20140127
  Serious: Yes (Other)
  Sender: FDA-Public Use
  Company Number: US-009507513-1212USA011075

PATIENT
  Age: 81 None
  Sex: Female

DRUGS (3)
  1. JANUVIA [Suspect]
     Indication: DIABETES MELLITUS
     Dosage: UNK
     Route: 048
     Dates: start: 20120822, end: 20120903
  2. GLIPIZIDE [Concomitant]
  3. LISINOPRIL [Concomitant]

REACTIONS (5)
  - Tongue neoplasm malignant stage unspecified [Not Recovered/Not Resolved]
  - Tongue disorder [Recovering/Resolving]
  - Glossodynia [Not Recovered/Not Resolved]
  - Hypoaesthesia oral [Not Recovered/Not Resolved]
  - Diarrhoea [Unknown]
